FAERS Safety Report 11008904 (Version 1)
Quarter: 2015Q2

REPORT INFORMATION
  Report Type: Spontaneous
  Country: US (occurrence: US)
  Receive Date: 20150410
  Receipt Date: 20150410
  Transmission Date: 20150821
  Serious: No
  Sender: FDA-Public Use
  Company Number: US-BAUSCH-BL-2014-010741

PATIENT
  Age: 77 Year
  Sex: Female
  Weight: 66.28 kg

DRUGS (1)
  1. ALDARA [Suspect]
     Active Substance: IMIQUIMOD
     Indication: HYPERSENSITIVITY
     Route: 061
     Dates: start: 20141210, end: 20141211

REACTIONS (2)
  - Application site erythema [Not Recovered/Not Resolved]
  - Application site warmth [Not Recovered/Not Resolved]

NARRATIVE: CASE EVENT DATE: 20141210
